FAERS Safety Report 13988869 (Version 1)
Quarter: 2017Q3

REPORT INFORMATION
  Report Type: Spontaneous
  Country: CA (occurrence: CA)
  Receive Date: 20170919
  Receipt Date: 20170919
  Transmission Date: 20171128
  Serious: Yes (Death)
  Sender: FDA-Public Use
  Company Number: CA-TEVA-807447ACC

PATIENT
  Age: 41 Year
  Sex: Female

DRUGS (6)
  1. GABAPENTIN. [Concomitant]
     Active Substance: GABAPENTIN
  2. ALPRAZOLAM. [Suspect]
     Active Substance: ALPRAZOLAM
     Indication: ANXIETY
     Route: 048
  3. ACETAMINOPHEN W/OXYCODONE [Suspect]
     Active Substance: ACETAMINOPHEN\OXYCODONE HYDROCHLORIDE
     Indication: PHANTOM PAIN
     Route: 048
  4. SERTRALINE [Concomitant]
     Active Substance: SERTRALINE HYDROCHLORIDE
  5. ZOPICLONE [Concomitant]
     Active Substance: ZOPICLONE
  6. LOSARTAN/HCTZ [Concomitant]
     Active Substance: HYDROCHLOROTHIAZIDE\LOSARTAN

REACTIONS (3)
  - Drug screen positive [Fatal]
  - Toxicologic test abnormal [Fatal]
  - Toxicity to various agents [Fatal]
